FAERS Safety Report 7036209-0 (Version None)
Quarter: 2010Q4

REPORT INFORMATION
  Report Type: 
  Country: None (occurrence: None)
  Receive Date: 20101008
  Receipt Date: 20100927
  Transmission Date: 20110411
  Serious: Yes (Hospitalization, Other)
  Sender: FDA-Public Use
  Company Number: GB-MYLANLABS-2010S1017788

PATIENT
  Age: 14 Year
  Sex: Female

DRUGS (9)
  1. LAMOTRIGINE [Suspect]
     Indication: EPILEPSY
     Route: 048
  2. TOPIRAMATE [Suspect]
     Indication: PETIT MAL EPILEPSY
  3. TOPAMAX [Suspect]
     Indication: PETIT MAL EPILEPSY
     Route: 048
  4. TOPAMAX [Suspect]
     Route: 048
  5. TOPAMAX [Suspect]
     Route: 048
  6. TOPAMAX [Suspect]
     Route: 048
  7. TOPAMAX [Suspect]
     Route: 048
     Dates: start: 20100601
  8. TOPAMAX [Suspect]
     Route: 048
     Dates: start: 20100501
  9. TOPAMAX [Suspect]
     Route: 048
     Dates: start: 20070401

REACTIONS (7)
  - ABASIA [None]
  - BALANCE DISORDER [None]
  - CONVULSION [None]
  - DIZZINESS [None]
  - DYSARTHRIA [None]
  - HEADACHE [None]
  - VISION BLURRED [None]
